FAERS Safety Report 25024241 (Version 1)
Quarter: 2025Q1

REPORT INFORMATION
  Report Type: Spontaneous
  Country: HR (occurrence: HR)
  Receive Date: 20250228
  Receipt Date: 20250228
  Transmission Date: 20250408
  Serious: Yes (Other)
  Sender: NOVARTIS
  Company Number: HR-002147023-NVSC2025HR030800

PATIENT
  Age: 49 Year
  Sex: Female

DRUGS (2)
  1. KISQALI [Suspect]
     Active Substance: RIBOCICLIB
     Indication: Hormone receptor positive HER2 negative breast cancer
     Dosage: 600 MG, QD (ONCE DAILY FOR 3 WEEKS FOLLOWED BY 1 WEEK OFF TREATMENT)
     Route: 065
     Dates: start: 20241029
  2. LETROZOLE [Concomitant]
     Active Substance: LETROZOLE
     Indication: Hormone receptor positive HER2 negative breast cancer
     Route: 065
     Dates: start: 20241014

REACTIONS (4)
  - Pulmonary fibrosis [Unknown]
  - Metastases to liver [Unknown]
  - Metastases to lung [Unknown]
  - Breast atrophy [Unknown]

NARRATIVE: CASE EVENT DATE: 20250201
